FAERS Safety Report 4348317-3 (Version None)
Quarter: 2004Q2

REPORT INFORMATION
  Report Type: 
  Country: None (occurrence: None)
  Receive Date: 20040427
  Receipt Date: 20040331
  Transmission Date: 20050107
  Serious: Yes (Life-Threatening, Hospitalization, Disabling, Other)
  Sender: FDA-Public Use
  Company Number: US-GLAXOSMITHKLINE-A0505412A

PATIENT
  Age: 81 Year
  Sex: Female

DRUGS (13)
  1. VALTREX [Suspect]
     Dosage: 500MG PER DAY
     Route: 048
     Dates: start: 20040325, end: 20040328
  2. PROAMATINE [Concomitant]
     Dosage: 5MG PER DAY
     Route: 048
     Dates: start: 20031219
  3. PRILOSEC [Concomitant]
     Dosage: 20MG PER DAY
     Route: 048
     Dates: start: 20020705
  4. NEPHROCAPS [Concomitant]
     Dosage: 1CAP PER DAY
     Route: 048
     Dates: start: 20020705
  5. BRONTEX [Concomitant]
     Indication: COUGH
     Dosage: 1TAB AS REQUIRED
     Route: 048
     Dates: start: 20031202
  6. DUONEB [Concomitant]
     Indication: ILL-DEFINED DISORDER
     Dosage: 1VIAL AS REQUIRED
     Route: 055
     Dates: start: 20030509
  7. ASPIRIN [Concomitant]
     Indication: CEREBROVASCULAR ACCIDENT PROPHYLAXIS
     Dosage: 81MG PER DAY
     Route: 048
     Dates: start: 20020705
  8. AMIODARONE HCL [Concomitant]
     Dosage: 200MG TWICE PER DAY
     Route: 048
     Dates: start: 20030509
  9. AGGRENOX [Concomitant]
     Indication: CEREBROVASCULAR ACCIDENT PROPHYLAXIS
     Dosage: 1CAP TWICE PER DAY
     Route: 048
     Dates: start: 20030730
  10. GLIPIZIDE [Concomitant]
     Dates: end: 20030101
  11. COLACE [Concomitant]
     Dosage: 100MG TWICE PER DAY
     Route: 048
     Dates: start: 20020705
  12. LACTULOSE [Concomitant]
     Indication: CONSTIPATION
     Dates: start: 20040308
  13. MUCINEX [Concomitant]
     Indication: PRODUCTIVE COUGH
     Dosage: 600MG TWICE PER DAY
     Route: 048
     Dates: start: 20030509

REACTIONS (10)
  - AGGRESSION [None]
  - AGITATION [None]
  - COMA [None]
  - CONFUSIONAL STATE [None]
  - DEPRESSED LEVEL OF CONSCIOUSNESS [None]
  - DYSARTHRIA [None]
  - HALLUCINATION [None]
  - LACRIMATION INCREASED [None]
  - LETHARGY [None]
  - TREMOR [None]
